FAERS Safety Report 5834628-9 (Version None)
Quarter: 2008Q3

REPORT INFORMATION
  Report Type: 
  Country: None (occurrence: None)
  Receive Date: 20080805
  Receipt Date: 20080730
  Transmission Date: 20090109
  Serious: Yes (Other)
  Sender: FDA-Public Use
  Company Number: US-ASTRAZENECA-2008UW14931

PATIENT
  Age: 67 Year
  Sex: Female

DRUGS (9)
  1. ARIMIDEX [Suspect]
     Route: 048
  2. FOSAMAX [Concomitant]
  3. CALCIUM W/ VITAMIN D [Concomitant]
  4. TRIAMTERENE [Concomitant]
  5. HYDROCHLOROTHIAZIDE [Concomitant]
  6. GEMFIBROZIL [Concomitant]
  7. METHOTREXATE [Concomitant]
     Indication: ARTHRITIS
  8. SINGULAIR [Concomitant]
  9. OMEPRAZOLE [Concomitant]

REACTIONS (1)
  - METASTASIS [None]
